FAERS Safety Report 15769542 (Version 1)
Quarter: 2018Q4

REPORT INFORMATION
  Report Type: Spontaneous
  Country: US (occurrence: US)
  Receive Date: 20181224
  Receipt Date: 20181224
  Transmission Date: 20190205
  Serious: No
  Sender: FDA-Public Use
  Company Number: None

PATIENT
  Age: 32 Year
  Sex: Male
  Weight: 90.8 kg

DRUGS (2)
  1. ETOPOSIDE (VP-16) [Suspect]
     Active Substance: ETOPOSIDE
     Dates: end: 20181118
  2. CARBOPLATIN. [Suspect]
     Active Substance: CARBOPLATIN
     Dates: end: 20181218

REACTIONS (7)
  - Bacteraemia [None]
  - Band neutrophil count decreased [None]
  - Blood culture positive [None]
  - White blood cell count decreased [None]
  - Pyrexia [None]
  - Tachypnoea [None]
  - Vomiting [None]

NARRATIVE: CASE EVENT DATE: 20181207
